FAERS Safety Report 7631944-5 (Version None)
Quarter: 2011Q3

REPORT INFORMATION
  Report Type: 
  Country: None (occurrence: None)
  Receive Date: 20110725
  Receipt Date: 20110718
  Transmission Date: 20111222
  Serious: Yes (Death)
  Sender: FDA-Public Use
  Company Number: US-GILEAD-2011-0042027

PATIENT
  Age: 73 Year
  Sex: Female

DRUGS (12)
  1. EPOGEN [Concomitant]
  2. ZEMPLAR [Concomitant]
  3. LETAIRIS [Suspect]
     Indication: PULMONARY HYPERTENSION
     Route: 048
     Dates: start: 20100910, end: 20110601
  4. ISOSORBIDE DINITRATE [Concomitant]
  5. LEVEMIR [Concomitant]
  6. SPIRIVA [Concomitant]
  7. PROAIR HFA [Concomitant]
  8. LEVOTHYROXINE SODIUM [Concomitant]
  9. SIMVASTATIN [Concomitant]
  10. METOPROLOL TARTRATE [Concomitant]
  11. PAROXETINE HCL [Concomitant]
  12. LOSARTAN POTASSIUM [Concomitant]

REACTIONS (2)
  - BRADYCARDIA [None]
  - PULSELESS ELECTRICAL ACTIVITY [None]
